FAERS Safety Report 6615506-4 (Version None)
Quarter: 2010Q1

REPORT INFORMATION
  Report Type: 
  Country: None (occurrence: None)
  Receive Date: 20100305
  Receipt Date: 20100222
  Transmission Date: 20100710
  Serious: Yes (Hospitalization)
  Sender: FDA-Public Use
  Company Number: JP-ROCHE-681725

PATIENT
  Sex: Female
  Weight: 48 kg

DRUGS (14)
  1. TOCILIZUMAB [Suspect]
     Indication: RHEUMATOID ARTHRITIS
     Route: 041
     Dates: start: 20090819, end: 20090819
  2. PREDNISOLONE [Suspect]
     Indication: DRUG USE FOR UNKNOWN INDICATION
     Dosage: DOSE FORM: PER ORAL AGENT.
     Route: 048
     Dates: end: 20090809
  3. PREDNISOLONE [Suspect]
     Route: 048
     Dates: start: 20090810
  4. AZULFIDINE [Concomitant]
     Dosage: DOSE FORM: ENTERIC COATING DRUG.
     Route: 048
     Dates: end: 20090810
  5. AZULFIDINE [Concomitant]
     Dosage: DOSE FORM: ENTERIC COATING DRUG
     Route: 048
  6. BIOFERMIN [Concomitant]
     Dosage: DOSE FORM: PER ORAL AGENT
     Route: 048
  7. HYPEN [Concomitant]
     Route: 048
  8. GASMOTIN [Concomitant]
     Dosage: DOSE FORM: PERORAL AGENT
     Route: 048
  9. BAKTAR [Concomitant]
     Dosage: DOSE FORM: PERORAL AGENT
     Route: 048
  10. LIVALO [Concomitant]
     Route: 048
  11. PENTASA [Concomitant]
     Route: 048
  12. TAKEPRON [Concomitant]
     Route: 048
  13. ASPIRIN [Concomitant]
     Dosage: DOSE FORM: ENTERIC COATING DRUG
     Route: 048
  14. INSULIN HUMAN [Concomitant]
     Dosage: INNOLET R(INSULIN HUMAN(GENETICAL RECOMBINATION)), DOSE: 2 IU
     Route: 058

REACTIONS (2)
  - DISSEMINATED INTRAVASCULAR COAGULATION [None]
  - GASTROENTERITIS [None]
